FAERS Safety Report 8142881-4 (Version None)
Quarter: 2012Q1

REPORT INFORMATION
  Report Type: 
  Country: None (occurrence: None)
  Receive Date: 20120217
  Receipt Date: 20120203
  Transmission Date: 20120608
  Serious: Yes (Other)
  Sender: FDA-Public Use
  Company Number: BR-AMGEN-BRASP2012002566

PATIENT
  Age: 64 Year
  Sex: Female
  Weight: 55 kg

DRUGS (4)
  1. METICORTEN [Concomitant]
     Dosage: 5 MG, 1X/DAY (1 TABLET OF 5 MG, 1X/DAY)
  2. SULFASALAZINE [Concomitant]
     Dosage: 500 MG, 2X/WEEK
  3. ENBREL [Suspect]
     Indication: RHEUMATOID ARTHRITIS
     Dosage: 50 MG, 1X/WEEK
     Route: 058
     Dates: start: 20100301, end: 20111001
  4. ARAVA [Concomitant]
     Dosage: 20 MG, 3X/WEEK (1 TABLET OF 20 MG, 3X/WEEK)

REACTIONS (2)
  - RHEUMATOID ARTHRITIS [None]
  - FURUNCLE [None]
